FAERS Safety Report 19181131 (Version 6)
Quarter: 2021Q4

REPORT INFORMATION
  Report Type: Report from Study
  Country: KE (occurrence: KE)
  Receive Date: 20210426
  Receipt Date: 20211028
  Transmission Date: 20220303
  Serious: Yes (Other)
  Sender: FDA-Public Use
  Company Number: NVSC2021KE087565

PATIENT
  Age: 54 Year
  Sex: Female
  Weight: 96 kg

DRUGS (2)
  1. SACUBITRIL\VALSARTAN [Suspect]
     Active Substance: SACUBITRIL\VALSARTAN
     Indication: Cardiac failure chronic
     Dosage: 25 MG, BID
     Route: 048
     Dates: start: 20210412
  2. SACUBITRIL\VALSARTAN [Suspect]
     Active Substance: SACUBITRIL\VALSARTAN
     Indication: Cardiac failure

REACTIONS (11)
  - Headache [Recovered/Resolved]
  - Palpitations [Recovered/Resolved]
  - Prescribed underdose [Not Recovered/Not Resolved]
  - Hot flush [Recovered/Resolved]
  - Hyperhidrosis [Not Recovered/Not Resolved]
  - Chest pain [Recovered/Resolved]
  - Pain in extremity [Recovered/Resolved with Sequelae]
  - Palpitations [Not Recovered/Not Resolved]
  - Chest discomfort [Recovered/Resolved]
  - Confusional state [Recovered/Resolved]
  - Incoherent [Recovered/Resolved]

NARRATIVE: CASE EVENT DATE: 20210412
